FAERS Safety Report 8112318-X (Version None)
Quarter: 2012Q1

REPORT INFORMATION
  Report Type: 
  Country: None (occurrence: None)
  Receive Date: 20120203
  Receipt Date: 20120130
  Transmission Date: 20120608
  Serious: No
  Sender: FDA-Public Use
  Company Number: US-BAYER-2012-009719

PATIENT

DRUGS (1)
  1. FINACEA [Suspect]
     Dosage: FOR AROUND A MONTH

REACTIONS (1)
  - NO ADVERSE EVENT [None]
